FAERS Safety Report 26074692 (Version 1)
Quarter: 2025Q4

REPORT INFORMATION
  Report Type: Report from Study
  Country: IL (occurrence: IL)
  Receive Date: 20251121
  Receipt Date: 20251121
  Transmission Date: 20260118
  Serious: Yes (Other)
  Sender: DECIPHERA PHARMACEUTICALS
  Company Number: IL-DECIPHERA PHARMACEUTICALS LLC-2023IL000507

PATIENT
  Age: 68 Year
  Sex: Female
  Weight: 65 kg

DRUGS (15)
  1. QINLOCK [Suspect]
     Active Substance: RIPRETINIB
     Indication: Gastrointestinal stromal tumour
     Dosage: 100 MILLIGRAM, (2 PILLS A DAY) QD
     Dates: start: 20230521, end: 20230620
  2. QINLOCK [Suspect]
     Active Substance: RIPRETINIB
     Dosage: 100 MILLIGRAM, QD
     Dates: start: 20230628, end: 20230703
  3. QINLOCK [Suspect]
     Active Substance: RIPRETINIB
     Dosage: 50 MILLIGRAM, QD
     Dates: start: 20230704, end: 20230711
  4. QINLOCK [Suspect]
     Active Substance: RIPRETINIB
     Dosage: (ONE PILL ON EVEN DAYS AND TWO PILLS ON ODD DAYS)
     Dates: start: 20230712, end: 20230828
  5. QINLOCK [Suspect]
     Active Substance: RIPRETINIB
     Dosage: 50 MILLIGRAM, QD
     Dates: start: 20230914, end: 20230930
  6. QINLOCK [Suspect]
     Active Substance: RIPRETINIB
     Dosage: 100 MILLIGRAM, (2 PILLS A DAY) QD
     Dates: start: 20231001
  7. QINLOCK [Suspect]
     Active Substance: RIPRETINIB
     Dosage: 150 MILLIGRAM (3 PILLS) QD
     Dates: start: 20231102
  8. QINLOCK [Suspect]
     Active Substance: RIPRETINIB
     Dosage: 100 MILLIGRAM, QD
  9. QINLOCK [Suspect]
     Active Substance: RIPRETINIB
     Dosage: 100 MILLIGRAM, QD
  10. QINLOCK [Suspect]
     Active Substance: RIPRETINIB
     Dosage: 150 MILLIGRAM
  11. QINLOCK [Suspect]
     Active Substance: RIPRETINIB
     Dosage: 100 MILLIGRAM, ONE DAY AND 150 MG ON THE NEXT DAY [ALTERNATELY]
  12. ATORVASTATIN [Concomitant]
     Active Substance: ATORVASTATIN
     Indication: Hyperlipidaemia
     Dosage: 20 MILLIGRAM, BID
  13. EUTHYROX [Concomitant]
     Active Substance: LEVOTHYROXINE SODIUM
     Indication: Hypothyroidism
     Dosage: 100 MICROGRAM (ADMINISTER ON EMPTY STOMACH, 4 HOUR INTERVAL WITH CALCIUM SUPPLEMENTS AND DAIRY PRODUCTS) )
  14. LATANOPROST TIMOLOL [Concomitant]
     Indication: Glaucoma
     Dosage: UNK UNK, (1 DROP ON BOTH EYES) BID
  15. LORAZEPAM [Concomitant]
     Active Substance: LORAZEPAM
     Indication: Product used for unknown indication
     Dosage: 1 MILLIGRAM, (1 PILL A DAY- DAY BEFORE THE STRESSFULL EVENT) QD

REACTIONS (30)
  - Neuropathy peripheral [Recovering/Resolving]
  - Erythema [Recovering/Resolving]
  - Pain of skin [Unknown]
  - Skin lesion [Not Recovered/Not Resolved]
  - Hair texture abnormal [Unknown]
  - Pain [Recovering/Resolving]
  - Heart rate increased [Unknown]
  - Hyperhidrosis [Unknown]
  - Hot flush [Unknown]
  - Stress [Unknown]
  - Gamma-glutamyltransferase increased [Recovering/Resolving]
  - Pain in extremity [Not Recovered/Not Resolved]
  - Photosensitivity reaction [Recovering/Resolving]
  - Decreased appetite [Unknown]
  - Asthenia [Unknown]
  - Blood alkaline phosphatase increased [Recovering/Resolving]
  - Aspartate aminotransferase increased [Recovering/Resolving]
  - Rash [Recovering/Resolving]
  - Skin papilloma [Unknown]
  - Alopecia [Not Recovered/Not Resolved]
  - Pruritus [Unknown]
  - Palmar-plantar erythrodysaesthesia syndrome [Unknown]
  - Muscle spasms [Recovering/Resolving]
  - Hypertension [Not Recovered/Not Resolved]
  - Dyspnoea [Unknown]
  - Alanine aminotransferase increased [Recovering/Resolving]
  - Vaccination site rash [Not Recovered/Not Resolved]
  - Therapy partial responder [Unknown]
  - Underdose [Unknown]
  - Inappropriate schedule of product administration [Unknown]

NARRATIVE: CASE EVENT DATE: 20230101
